FAERS Safety Report 4277787-4 (Version None)
Quarter: 2004Q1

REPORT INFORMATION
  Report Type: 
  Country: None (occurrence: None)
  Receive Date: 20040121
  Receipt Date: 20040115
  Transmission Date: 20041129
  Serious: Yes (Hospitalization)
  Sender: FDA-Public Use
  Company Number: 200410022BFR

PATIENT
  Age: 50 Year
  Sex: Female

DRUGS (2)
  1. IZILOX (MOXIFLOXACIN HYDROCHLORIDE) [Suspect]
     Indication: ACUTE SINUSITIS
     Dosage: 400 MG, TOTAL DAILY, ORAL
     Route: 048
     Dates: start: 20031204, end: 20031205
  2. COSTICOSTEROID [Concomitant]

REACTIONS (5)
  - ANXIETY [None]
  - HYPOKALAEMIA [None]
  - MALAISE [None]
  - PALLOR [None]
  - TREMOR [None]
